FAERS Safety Report 12085669 (Version 1)
Quarter: 2016Q1

REPORT INFORMATION
  Report Type: Spontaneous
  Country: DE (occurrence: GB)
  Receive Date: 20160217
  Receipt Date: 20160217
  Transmission Date: 20160526
  Serious: Yes (Other)
  Sender: FDA-Public Use
  Company Number: DE-ACTELION-A-US2016-131619

PATIENT
  Age: 57 Year
  Sex: Male

DRUGS (1)
  1. VENTAVIS [Suspect]
     Active Substance: ILOPROST
     Indication: PULMONARY HYPERTENSION
     Dosage: 5 MCG, QID
     Route: 055

REACTIONS (3)
  - Lower respiratory tract infection [Unknown]
  - Anxiety [Unknown]
  - Treatment noncompliance [Unknown]
